FAERS Safety Report 11709825 (Version 2)
Quarter: 2015Q4

REPORT INFORMATION
  Report Type: Spontaneous
  Country: US (occurrence: US)
  Receive Date: 20151104
  Receipt Date: 20151110
  Transmission Date: 20160304
  Serious: No
  Sender: FDA-Public Use
  Company Number: US-ELI_LILLY_AND_COMPANY-US201102004414

PATIENT
  Age: 68 Year
  Sex: Female

DRUGS (2)
  1. FORTEO [Suspect]
     Active Substance: TERIPARATIDE
     Dosage: 20 UG, QD
     Dates: end: 20110826
  2. FORTEO [Suspect]
     Active Substance: TERIPARATIDE
     Indication: OSTEOPOROSIS
     Dosage: 20 UG, DAILY (1/D)
     Dates: start: 20101015

REACTIONS (11)
  - Fall [Recovered/Resolved]
  - Abdominal pain upper [Unknown]
  - Abdominal distension [Unknown]
  - Dizziness [Recovered/Resolved]
  - Constipation [Recovered/Resolved]
  - Injection site pain [Unknown]
  - Intentional product misuse [Unknown]
  - Eye laser surgery [Unknown]
  - Vision blurred [Unknown]
  - Retching [Unknown]
  - Eye irritation [Unknown]

NARRATIVE: CASE EVENT DATE: 201011
